FAERS Safety Report 9206168 (Version 1)
Quarter: 2013Q2

REPORT INFORMATION
  Report Type: Spontaneous
  Country: US (occurrence: None)
  Receive Date: 20130401
  Receipt Date: 20130401
  Transmission Date: 20140414
  Serious: Yes (Hospitalization, Other)
  Sender: FDA-Public Use
  Company Number: ACO_34872_2013

PATIENT
  Age: 62 Year
  Sex: Female

DRUGS (1)
  1. AMPYRA (DALFAMPRIDINE) TABLET, 10MG [Suspect]
     Indication: GAIT DISTURBANCE

REACTIONS (5)
  - Pneumonia [None]
  - Lower limb fracture [None]
  - Urinary incontinence [None]
  - Asthenia [None]
  - Drug dose omission [None]
